FAERS Safety Report 6796280-8 (Version None)
Quarter: 2010Q2

REPORT INFORMATION
  Report Type: 
  Country: None (occurrence: None)
  Receive Date: 20100624
  Receipt Date: 20100624
  Transmission Date: 20101027
  Serious: No
  Sender: FDA-Public Use
  Company Number: None

PATIENT
  Age: 77 Year
  Sex: Female
  Weight: 63.5036 kg

DRUGS (1)
  1. RECLAST [Suspect]
     Indication: OSTEOPOROSIS
     Dosage: OVERALL 3 HRS. IV/30
     Route: 042
     Dates: start: 20100514, end: 20100514

REACTIONS (2)
  - ALOPECIA [None]
  - HEADACHE [None]
